FAERS Safety Report 23664551 (Version 1)
Quarter: 2024Q1

REPORT INFORMATION
  Report Type: Report from Study
  Country: US (occurrence: US)
  Receive Date: 20240322
  Receipt Date: 20240322
  Transmission Date: 20240409
  Serious: No
  Sender: FDA-Public Use
  Company Number: US-E2BLSMVVAL-CLI/USA/24/0004478

PATIENT
  Age: 8 Year
  Sex: Male

DRUGS (1)
  1. SAPROPTERIN DIHYDROCHLORIDE [Suspect]
     Active Substance: SAPROPTERIN DIHYDROCHLORIDE
     Indication: Phenylketonuria
     Dosage: 400 MG DAILY, TAKING WITH MEAL (BREAKFAST)
     Route: 048
     Dates: start: 20230926

REACTIONS (1)
  - Abdominal pain [Unknown]
